FAERS Safety Report 9896083 (Version 1)
Quarter: 2014Q1

REPORT INFORMATION
  Report Type: Spontaneous
  Country: US (occurrence: US)
  Receive Date: 20140213
  Receipt Date: 20140213
  Transmission Date: 20141002
  Serious: No
  Sender: FDA-Public Use
  Company Number: US-BRISTOL-MYERS SQUIBB COMPANY-19047554

PATIENT
  Age: 61 Year
  Sex: Female
  Weight: 86.17 kg

DRUGS (9)
  1. ABATACEPT SUBQ INJECTION 125MG/ML [Suspect]
     Route: 058
  2. METHOTREXATE [Concomitant]
  3. MOBIC [Concomitant]
  4. ZOCOR [Concomitant]
     Dosage: TABS
  5. FOLIC ACID [Concomitant]
     Dosage: TABS
  6. HYDROCHLOROTHIAZIDE [Concomitant]
     Dosage: TABS
  7. METOPROLOL [Concomitant]
     Dosage: TABS ER
  8. MEDROXYPROGESTERONE ACETATE [Concomitant]
     Dosage: TABS
  9. ASPIRIN [Concomitant]
     Dosage: ASPIRIN LOW TAB EC

REACTIONS (1)
  - Influenza [Unknown]
